FAERS Safety Report 24940757 (Version 1)
Quarter: 2025Q1

REPORT INFORMATION
  Report Type: Spontaneous
  Country: US (occurrence: US)
  Receive Date: 20250207
  Receipt Date: 20250207
  Transmission Date: 20250408
  Serious: No
  Sender: ROCHE
  Company Number: US-ROCHE-10000199408

PATIENT
  Sex: Female

DRUGS (1)
  1. XOLAIR [Suspect]
     Active Substance: OMALIZUMAB
     Indication: Product used for unknown indication
     Dosage: SHE TOOK HER THIRD OMALIZUMAB SHOT ON 24-01-2025.
     Route: 065

REACTIONS (2)
  - Urticaria [Unknown]
  - Swelling face [Recovering/Resolving]
